FAERS Safety Report 4297336-4 (Version None)
Quarter: 2004Q1

REPORT INFORMATION
  Report Type: 
  Country: None (occurrence: None)
  Receive Date: 20040212
  Receipt Date: 20030814
  Transmission Date: 20041129
  Serious: Yes (Hospitalization)
  Sender: FDA-Public Use
  Company Number: A03200301853

PATIENT
  Age: 53 Year
  Sex: Female

DRUGS (2)
  1. AMBIEN [Suspect]
     Indication: INSOMNIA
     Dosage: ORAL
     Route: 048
  2. AMBIEN [Suspect]
     Indication: INSOMNIA
     Dosage: 20 MG THEN 20 MG WITHIN 30 MIN - ORAL
     Route: 048
     Dates: start: 20030801, end: 20030801

REACTIONS (2)
  - DISTURBANCE IN ATTENTION [None]
  - INTENTIONAL OVERDOSE [None]
